FAERS Safety Report 21236152 (Version 2)
Quarter: 2022Q3

REPORT INFORMATION
  Report Type: Report from Study
  Country: US (occurrence: US)
  Receive Date: 20220822
  Receipt Date: 20220927
  Transmission Date: 20221027
  Serious: Yes (Hospitalization, Other)
  Sender: FDA-Public Use
  Company Number: US-ABBVIE-22K-163-4501649-00

PATIENT
  Sex: Female

DRUGS (5)
  1. IMBRUVICA [Suspect]
     Active Substance: IBRUTINIB
     Indication: Diffuse large B-cell lymphoma
     Route: 048
     Dates: start: 20220625, end: 2022
  2. IMBRUVICA [Suspect]
     Active Substance: IBRUTINIB
     Indication: Diffuse large B-cell lymphoma
     Route: 048
     Dates: start: 2022, end: 20220808
  3. IMBRUVICA [Suspect]
     Active Substance: IBRUTINIB
     Indication: Diffuse large B-cell lymphoma
     Route: 048
     Dates: start: 2022, end: 20220904
  4. CRESEMBA [Concomitant]
     Active Substance: ISAVUCONAZONIUM SULFATE
     Indication: Product used for unknown indication
  5. REVLIMID [Concomitant]
     Active Substance: LENALIDOMIDE
     Indication: Product used for unknown indication

REACTIONS (16)
  - Cerebral infarction [Unknown]
  - White blood cell count abnormal [Unknown]
  - Deep vein thrombosis [Unknown]
  - Brain neoplasm malignant [Unknown]
  - COVID-19 [Unknown]
  - Urinary retention [Unknown]
  - Oedema peripheral [Unknown]
  - Pulmonary embolism [Unknown]
  - Pneumonia aspiration [Unknown]
  - Atrial fibrillation [Unknown]
  - Heparin-induced thrombocytopenia [Unknown]
  - Platelet count decreased [Unknown]
  - Renal disorder [Unknown]
  - COVID-19 pneumonia [Unknown]
  - Hyperhidrosis [Unknown]
  - Post procedural complication [Unknown]

NARRATIVE: CASE EVENT DATE: 20220101
